FAERS Safety Report 11057403 (Version 1)
Quarter: 2015Q2

REPORT INFORMATION
  Report Type: Spontaneous
  Country: US (occurrence: US)
  Receive Date: 20150422
  Receipt Date: 20150422
  Transmission Date: 20150821
  Serious: Yes (Life-Threatening, Hospitalization, Other)
  Sender: FDA-Public Use
  Company Number: US-BAYER-2015-137757

PATIENT
  Age: 31 Year
  Sex: Female

DRUGS (1)
  1. MIRENA [Suspect]
     Active Substance: LEVONORGESTREL
     Dosage: 20 MCG/24HR, CONT
     Route: 015
     Dates: start: 20100316, end: 20130205

REACTIONS (12)
  - Drug ineffective [None]
  - Emotional distress [None]
  - Pregnancy with contraceptive device [None]
  - Injury [None]
  - Pain [None]
  - Abdominal pain [None]
  - Vaginal haemorrhage [None]
  - General physical health deterioration [None]
  - Embedded device [None]
  - Abortion spontaneous [None]
  - Anxiety [None]
  - Anhedonia [None]

NARRATIVE: CASE EVENT DATE: 201301
